FAERS Safety Report 10617829 (Version 2)
Quarter: 2015Q1

REPORT INFORMATION
  Report Type: Report from Study
  Country: US (occurrence: US)
  Receive Date: 20141201
  Receipt Date: 20150102
  Transmission Date: 20150720
  Serious: Yes (Hospitalization)
  Sender: FDA-Public Use
  Company Number: US-ACTELION-A-NJ2014-108792

PATIENT
  Age: 73 Year
  Sex: Female

DRUGS (3)
  1. COUMADIN [Concomitant]
     Active Substance: WARFARIN SODIUM
  2. LETAIRIS [Concomitant]
     Active Substance: AMBRISENTAN
  3. VELETRI [Suspect]
     Active Substance: EPOPROSTENOL
     Indication: PULMONARY ARTERIAL HYPERTENSION
     Dosage: 43 NG/KG, PER MIN
     Route: 042
     Dates: start: 20120717

REACTIONS (5)
  - Pneumonia [Unknown]
  - Blood glucose decreased [Unknown]
  - Pulmonary oedema [Unknown]
  - Asthenia [Unknown]
  - Syncope [Unknown]
